FAERS Safety Report 14829278 (Version 2)
Quarter: 2018Q2

REPORT INFORMATION
  Report Type: Spontaneous
  Country: US (occurrence: US)
  Receive Date: 20180430
  Receipt Date: 20180515
  Transmission Date: 20180711
  Serious: Yes (Disabling)
  Sender: FDA-Public Use
  Company Number: US-SA-2018SA118967

PATIENT
  Age: 58 Year
  Sex: Male

DRUGS (45)
  1. DICYCLOMINE [Concomitant]
     Active Substance: DICYCLOMINE HYDROCHLORIDE
     Route: 048
  2. INSULIN [Concomitant]
     Active Substance: INSULIN NOS
     Dosage: SUPPLY BD INSULIN UF ORIGINAL 29 X 12.7 USE TO INJECT SUBCUTANEOUSLY TID MM PEN NEEDLE
     Route: 058
  3. VENLAFAXINE [Concomitant]
     Active Substance: VENLAFAXINE HYDROCHLORIDE
     Route: 048
  4. ALLOPURINOL. [Concomitant]
     Active Substance: ALLOPURINOL
     Route: 048
  5. ASPIRIN. [Concomitant]
     Active Substance: ASPIRIN
     Dosage: EC TABLET
     Route: 048
  6. ATORVASTATIN [Concomitant]
     Active Substance: ATORVASTATIN
     Dosage: EVERY EVENING
     Route: 048
  7. KETOCONAZOLE. [Concomitant]
     Active Substance: KETOCONAZOLE
     Dosage: 2 % SHAMPOO?APPLY TOPICALLY DAILY. DAY SUPPLY: 30 WITH REFILLS
     Route: 061
  8. SOLOSTAR [Suspect]
     Active Substance: DEVICE
     Route: 065
  9. ACARBOSE. [Concomitant]
     Active Substance: ACARBOSE
     Dosage: 50 MG
     Route: 048
  10. FERROUS SULFATE. [Concomitant]
     Active Substance: FERROUS SULFATE
     Route: 048
  11. FLUOCINONIDE. [Concomitant]
     Active Substance: FLUOCINONIDE
     Route: 061
  12. GABAPENTIN. [Concomitant]
     Active Substance: GABAPENTIN
     Route: 048
  13. MONTELUKAST [Concomitant]
     Active Substance: MONTELUKAST SODIUM
     Route: 048
  14. PHAZYME [Concomitant]
     Active Substance: DIMETHICONE 410
     Dosage: 2 TIMES DAILY AS NEEDED
     Route: 048
  15. HYDROCHLOROTHIAZIDE/VALSARTAN [Concomitant]
     Dosage: 320-25 TRIG PER TABLET
     Route: 048
  16. FLUTICASONE. [Concomitant]
     Active Substance: FLUTICASONE
     Indication: RHINITIS ALLERGIC
     Dosage: 50 MCG/ACTUATION NASAL, USE 2 SPRAYS INTO BOTH NOSTRILS DAILY
     Route: 065
  17. LANTUS SOLOSTAR [Concomitant]
     Active Substance: INSULIN GLARGINE
     Dosage: DOSE:15 UNIT(S)
     Route: 058
  18. ISOSORBIDE MONONITRATE. [Concomitant]
     Active Substance: ISOSORBIDE MONONITRATE
     Dosage: EVERY MORNING, CR TABLET
     Route: 048
  19. METOPROLOL SUCCINATE. [Concomitant]
     Active Substance: METOPROLOL SUCCINATE
     Route: 048
  20. COLCHICINE. [Concomitant]
     Active Substance: COLCHICINE
     Dosage: TAKE 1 TABLET (0.6 MG TOTAL) BY MOUTH 2 TIMES DAILY AS NEEDED
     Route: 048
  21. HUMALOG [Concomitant]
     Active Substance: INSULIN LISPRO
     Dosage: WITH MEALS DOSE:25 UNIT(S)
     Route: 058
  22. NITROSTAT [Concomitant]
     Active Substance: NITROGLYCERIN
     Dosage: PLACE 1 TABLET (0.4 MG TOTAL) UNDER THE TONGUE EVERY 5 MINUTES AS NEEDED
  23. PATADAY [Concomitant]
     Active Substance: OLOPATADINE HYDROCHLORIDE
     Dosage: INSTILL 1 DROP ONTO BOTH EYES 2 TIMES DAILY AS NEEDED
     Route: 047
  24. HUMALOG [Concomitant]
     Active Substance: INSULIN LISPRO
     Route: 065
  25. ACETAMINOPHEN. [Concomitant]
     Active Substance: ACETAMINOPHEN
     Dosage: 500 MG, TAKE 1-2 TABLETS (500-1,000 MG TOTAL) BY MOUTH 3 TIMES DAILY AS NEEDED
     Route: 048
  26. VITAMIN D3 [Concomitant]
     Active Substance: CHOLECALCIFEROL
     Dosage: DOSE:2000 UNIT(S)
     Route: 048
  27. BYDUREON [Concomitant]
     Active Substance: EXENATIDE
     Route: 058
  28. MICONAZOLE. [Concomitant]
     Active Substance: MICONAZOLE
     Dosage: 2 % POWDER
     Route: 061
  29. RANITIDINE. [Concomitant]
     Active Substance: RANITIDINE
     Route: 048
  30. TOPIRAMATE. [Concomitant]
     Active Substance: TOPIRAMATE
     Dosage: TAKE 1.5 TABLETS (150 MG TOTAL) BY MOUTH 2 TIMES DAILY
     Route: 048
  31. WARFARIN [Concomitant]
     Active Substance: WARFARIN
     Route: 048
  32. FUROSEMIDE. [Concomitant]
     Active Substance: FUROSEMIDE
     Dosage: 40 MG TABLET,TAKE 60 MG IN THE MORNING AND 40 MG AT NOON
     Route: 065
  33. HYDROCORTISONE. [Concomitant]
     Active Substance: HYDROCORTISONE
     Dosage: 2.5 % OINTMENT?APPLY TO FACE DAILY FOR UP TO 2 WEEKS ONLY WHEN RASH IS PRESENT
  34. KETOCONAZOLE. [Concomitant]
     Active Substance: KETOCONAZOLE
     Dosage: 2 % CREAM
     Route: 061
  35. METFORMIN [Concomitant]
     Active Substance: METFORMIN HYDROCHLORIDE
     Dosage: XR TABLET, WITH MEALS
     Route: 048
  36. SENNOSIDES. [Concomitant]
     Active Substance: SENNOSIDES
     Dosage: (8.6 MG TOTAL) BY MOUTH 2 TIMES DAILY AS NEEDED
     Route: 048
  37. LANTUS SOLOSTAR [Suspect]
     Active Substance: INSULIN GLARGINE
     Indication: DIABETES MELLITUS
     Route: 065
  38. DESONIDE. [Concomitant]
     Active Substance: DESONIDE
     Route: 061
  39. SOLOSTAR [Concomitant]
     Active Substance: DEVICE
  40. LEVOCETIRIZINE [Concomitant]
     Active Substance: LEVOCETIRIZINE
     Dosage: EVERY EVENING
     Route: 048
  41. LORAZEPAM. [Concomitant]
     Active Substance: LORAZEPAM
     Dosage: EVERY 8 HOURS AS NEEDED
     Route: 048
  42. NYSTATIN. [Concomitant]
     Active Substance: NYSTATIN
     Dosage: 100,000 UNIT/9 OINTMENT
     Route: 061
  43. OMEGA-3 FATTY ACIDS [Concomitant]
     Active Substance: OMEGA-3 FATTY ACIDS
     Route: 048
  44. OMEPRAZOLE. [Concomitant]
     Active Substance: OMEPRAZOLE
     Dosage: ENTERIC COATED
     Route: 048
  45. TRIAMCINOLONE [Concomitant]
     Active Substance: TRIAMCINOLONE
     Route: 061

REACTIONS (1)
  - Disability [Unknown]
